FAERS Safety Report 4779649-2 (Version None)
Quarter: 2005Q3

REPORT INFORMATION
  Report Type: 
  Country: None (occurrence: None)
  Receive Date: 20050914
  Receipt Date: 20050225
  Transmission Date: 20060218
  Serious: Yes (Hospitalization)
  Sender: FDA-Public Use
  Company Number: 163-20785-05030007

PATIENT
  Age: 62 Year
  Sex: Female

DRUGS (26)
  1. THALOMID [Suspect]
     Indication: WALDENSTROM'S MACROGLOBULINAEMIA
     Dosage: ORAL
     Route: 048
     Dates: start: 20041001
  2. THALOMID [Suspect]
     Indication: WALDENSTROM'S MACROGLOBULINAEMIA
     Dosage: ORAL
     Route: 048
     Dates: start: 20041201
  3. MELPHALAN (MELPHALAN) [Suspect]
     Indication: WALDENSTROM'S MACROGLOBULINAEMIA
     Dosage: 200MG/M2, DAILY
     Dates: start: 20050106, end: 20050106
  4. DEXAMETHASONE [Suspect]
     Indication: WALDENSTROM'S MACROGLOBULINAEMIA
     Dates: start: 20041001
  5. DEXAMETHASONE [Suspect]
     Indication: WALDENSTROM'S MACROGLOBULINAEMIA
     Dates: start: 20041201
  6. CISPLATIN [Suspect]
     Indication: WALDENSTROM'S MACROGLOBULINAEMIA
     Dates: start: 20041001
  7. CISPLATIN [Suspect]
     Indication: WALDENSTROM'S MACROGLOBULINAEMIA
     Dates: start: 20041201
  8. ADRIAMYCIN PFS [Suspect]
     Indication: WALDENSTROM'S MACROGLOBULINAEMIA
     Dates: start: 20041001
  9. ADRIAMYCIN PFS [Suspect]
     Indication: WALDENSTROM'S MACROGLOBULINAEMIA
     Dates: start: 20041201
  10. CYCLOPHOSPHAMIDE [Suspect]
     Indication: WALDENSTROM'S MACROGLOBULINAEMIA
     Dates: start: 20041001
  11. CYCLOPHOSPHAMIDE [Suspect]
     Indication: WALDENSTROM'S MACROGLOBULINAEMIA
     Dates: start: 20041201
  12. ETOPOSIDE [Suspect]
     Indication: WALDENSTROM'S MACROGLOBULINAEMIA
     Dates: start: 20041001
  13. ETOPOSIDE [Suspect]
     Indication: WALDENSTROM'S MACROGLOBULINAEMIA
     Dates: start: 20041201
  14. RITUXAN [Suspect]
     Indication: WALDENSTROM'S MACROGLOBULINAEMIA
     Dates: start: 20041001
  15. TEQUIN [Concomitant]
  16. ACYCLOVIR [Concomitant]
  17. DIFLUCAN [Concomitant]
  18. ZANTAC [Concomitant]
  19. FOLIC ACID [Concomitant]
  20. PROCRIT [Concomitant]
  21. AMBIEN [Concomitant]
  22. MULTI-VITAMINS [Concomitant]
  23. IMODIUM [Concomitant]
  24. ATIVAN [Concomitant]
  25. ATENOLOL [Concomitant]
  26. HYDROCHLOROTHIAZIDE [Concomitant]

REACTIONS (1)
  - MUCOSAL INFLAMMATION [None]
